FAERS Safety Report 12424882 (Version 1)
Quarter: 2016Q2

REPORT INFORMATION
  Report Type: Spontaneous
  Country: DE (occurrence: DE)
  Receive Date: 20160601
  Receipt Date: 20160601
  Transmission Date: 20160815
  Serious: Yes (Disabling)
  Sender: FDA-Public Use
  Company Number: DE-B.I. PHARMACEUTICALS,INC./RIDGEFIELD-2016-BI-18766DE

PATIENT
  Age: 71 Year
  Sex: Male
  Weight: 79 kg

DRUGS (7)
  1. XELEVIA [Concomitant]
     Active Substance: SITAGLIPTIN PHOSPHATE
     Indication: TYPE 2 DIABETES MELLITUS
     Dosage: 100 MG
     Route: 048
     Dates: start: 201511
  2. ASPIRIN PROTECT [Concomitant]
     Active Substance: ASPIRIN
     Indication: CEREBRAL MICROANGIOPATHY
     Dosage: 100 MG
     Route: 048
  3. SIMVASTATIN. [Concomitant]
     Active Substance: SIMVASTATIN
     Indication: CEREBRAL MICROANGIOPATHY
     Dosage: 40 MG
     Route: 048
  4. PROFACT DEPOT 3-MONATSIMPLANTAT [Concomitant]
     Indication: PROSTATE CANCER
     Route: 065
     Dates: start: 201503
  5. BISOPROLOL [Concomitant]
     Active Substance: BISOPROLOL
     Indication: HYPERTENSION
     Dosage: 1.5 ANZ
     Route: 048
  6. YENTREVE [Concomitant]
     Active Substance: DULOXETINE HYDROCHLORIDE
     Indication: INCONTINENCE
     Dosage: 40 MG
     Route: 048
     Dates: start: 201502
  7. JARDIANCE [Suspect]
     Active Substance: EMPAGLIFLOZIN
     Indication: TYPE 2 DIABETES MELLITUS
     Dosage: 10 MG
     Route: 048
     Dates: start: 20160309

REACTIONS (5)
  - Incontinence [Not Recovered/Not Resolved]
  - Micturition urgency [Unknown]
  - Heat exhaustion [Not Recovered/Not Resolved]
  - Weight decreased [Unknown]
  - Thirst [Unknown]

NARRATIVE: CASE EVENT DATE: 201603
